FAERS Safety Report 6911709-X (Version None)
Quarter: 2010Q3

REPORT INFORMATION
  Report Type: 
  Country: None (occurrence: None)
  Receive Date: 20100806
  Receipt Date: 20100728
  Transmission Date: 20110219
  Serious: Yes (Hospitalization, Other)
  Sender: FDA-Public Use
  Company Number: CA-ABBOTT-10P-028-0660818-00

PATIENT
  Sex: Female
  Weight: 113.5 kg

DRUGS (14)
  1. HUMIRA [Suspect]
     Indication: RHEUMATOID ARTHRITIS
     Route: 058
     Dates: start: 20070804
  2. HUMIRA [Suspect]
     Dates: start: 20100724
  3. AMYTRYPTILINE [Concomitant]
     Indication: ANXIOLYTIC THERAPY
     Dosage: 75MG X 2 TABLETS AT BEDTIME
     Route: 048
  4. OXYBUTYNIN CHLORIDE [Concomitant]
     Indication: BLADDER DISORDER
     Dosage: 5MG X 1 TABLET AT BEDTIME
     Route: 048
  5. RABEPRAZOLE SODIUM [Concomitant]
     Indication: GASTRIC DISORDER
     Dosage: 10MG X 1 TABLET TWICE DAILY
     Route: 048
  6. OGEN [Concomitant]
     Indication: HORMONE REPLACEMENT THERAPY
     Route: 048
  7. ARTHROTEC [Concomitant]
     Indication: ARTHRITIS
     Dosage: 75 MG 1 TAB TWICE DAILY
  8. ARTHROTEC [Concomitant]
     Dosage: 75MG X 1 TABLET TWICE DAILY
  9. ARAVA [Concomitant]
     Indication: ARTHRITIS
     Route: 048
  10. ARAVA [Concomitant]
  11. METFORMIN HCL [Concomitant]
     Indication: DIABETES MELLITUS
     Dosage: 500MG X 2 TABLETS TWICE DAILY
     Route: 048
  12. GLICLAZIDE [Concomitant]
     Indication: DIABETES MELLITUS
     Dosage: 80MG X 1/2 TABLET DAILY
     Route: 048
  13. VITAMIN D [Concomitant]
     Indication: VITAMIN SUPPLEMENTATION
     Route: 048
  14. CALCIUM [Concomitant]
     Indication: MINERAL SUPPLEMENTATION
     Dosage: 500MG X 1 TABLET THREE TIMES DAILY
     Route: 048

REACTIONS (4)
  - ARTHRALGIA [None]
  - FALL [None]
  - JOINT DISLOCATION [None]
  - OSTEOARTHRITIS [None]
